FAERS Safety Report 9519676 (Version 2)
Quarter: 2014Q1

REPORT INFORMATION
  Report Type: Spontaneous
  Country: US (occurrence: None)
  Receive Date: 20130305
  Receipt Date: 20140306
  Transmission Date: 20141002
  Serious: Yes (Hospitalization, Disabling, Other)
  Sender: FDA-Public Use
  Company Number: 163-21880-12122942

PATIENT
  Age: 60 Year
  Sex: Male

DRUGS (22)
  1. REVLIMID [Suspect]
     Indication: PLASMA CELL MYELOMA
     Route: 048
     Dates: start: 20110907, end: 20111202
  2. VELCADE (BORTEZOMIB) [Concomitant]
  3. DECADRON (DEXAMETHASONE) [Concomitant]
  4. ARIXTRA (FONDAPARINUX SODIUM) [Concomitant]
  5. TOFRANIL (IMIPRAMINE HYDROCHLORIDE) [Concomitant]
  6. RESCUE 3000 FISH OIL (FISH OIL) [Concomitant]
  7. ACAI (EUTERPE OLERACEA FRUIT) [Concomitant]
  8. ASTRAGALUS (ASTRAGALUS COMPLEX) [Concomitant]
  9. ATIVAN (LORAZEPAM) [Concomitant]
  10. CALCIUM WITH VITAMIN D [Concomitant]
  11. CLARITIN (LORATADINE) [Concomitant]
  12. COLACE (DOCUSATE SODIUM) [Concomitant]
  13. KLONOPIN (CLONAZEPAM) [Concomitant]
  14. MANUKA HONEY [Concomitant]
  15. MULTIVITAMINS [Concomitant]
  16. OXYCODONE [Concomitant]
  17. OXYCONTIN (OXYCODONE HYDROCHLORIDE) [Concomitant]
  18. PREVACID (LANSOPRAZOLE) [Concomitant]
  19. VALACYCLOVIR (VALACYCLOVIR HYDROCHLORIDE) [Concomitant]
  20. ZANTAC (RANITIDINE HYDROCHLORIDE) [Concomitant]
  21. CYTOXAN (CYCLOPHOSPHAMIDE) [Concomitant]
  22. LOVENOX (HEPARIN-FRACTION, SODIUM SALT) [Concomitant]

REACTIONS (8)
  - Plasmacytoma [None]
  - Jugular vein thrombosis [None]
  - Abdominal discomfort [None]
  - Local swelling [None]
  - Malaise [None]
  - Fatigue [None]
  - Pyrexia [None]
  - Spinal compression fracture [None]
